FAERS Safety Report 4574054-6 (Version None)
Quarter: 2005Q1

REPORT INFORMATION
  Report Type: 
  Country: None (occurrence: None)
  Receive Date: 20050204
  Receipt Date: 20050121
  Transmission Date: 20050727
  Serious: Yes (Other)
  Sender: FDA-Public Use
  Company Number: 2004089675

PATIENT
  Age: 57 Year
  Sex: Female
  Weight: 58.0604 kg

DRUGS (10)
  1. CLEOCIN HCL [Suspect]
     Indication: OSTEOMYELITIS
     Dosage: ORAL
     Route: 048
     Dates: start: 20040701
  2. FUROSEMIDE (FUROSEMIDE) [Concomitant]
  3. CALCITONIN, SALMON (CALCITONIN, SALMON) [Concomitant]
  4. BACLOFEN [Concomitant]
  5. PAROXETINE HCL [Concomitant]
  6. POTASSIUM (POTASSIUM) [Concomitant]
  7. METHADON HCL TAB [Concomitant]
  8. PROCHLORPERAZINE [Concomitant]
  9. INTERFERON (INTERFERON) [Concomitant]
  10. RETINOVIR [Concomitant]

REACTIONS (2)
  - DISEASE RECURRENCE [None]
  - OSTEOMYELITIS [None]
